FAERS Safety Report 9825069 (Version 1)
Quarter: 2013Q4

REPORT INFORMATION
  Report Type: Spontaneous
  Country: CR (occurrence: None)
  Receive Date: 20131031
  Receipt Date: 20131031
  Transmission Date: 20140711
  Serious: No
  Sender: FDA-Public Use
  Company Number: 2013S1000012

PATIENT
  Age: 55 Year
  Sex: Male
  Weight: 83 kg

DRUGS (5)
  1. KRYSTEXXA [Suspect]
     Indication: GOUTY TOPHUS
     Dosage: 8 MG; Q14DAYS; IV
     Route: 042
     Dates: start: 20130107, end: 20130107
  2. METHOTREXATE [Concomitant]
  3. ANTINFLAMMATORY AND ANTIRHEUMATIC PRODUCTS [Concomitant]
  4. CORTICOSTEROIDS [Concomitant]
  5. CLEMASTINE FUMARATE [Concomitant]

REACTIONS (1)
  - Therapeutic response decreased [None]
